FAERS Safety Report 5324787-9 (Version None)
Quarter: 2007Q2

REPORT INFORMATION
  Report Type: 
  Country: None (occurrence: None)
  Receive Date: 20070515
  Receipt Date: 20070503
  Transmission Date: 20071010
  Serious: Yes (Hospitalization, Other)
  Sender: FDA-Public Use
  Company Number: PHEH2007US05507

PATIENT
  Age: 66 Year
  Sex: Female

DRUGS (42)
  1. ZELNORM [Suspect]
     Indication: ABDOMINAL PAIN UPPER
     Dosage: UNK, BID
     Route: 048
     Dates: start: 20061001, end: 20070415
  2. COMBIVENT [Concomitant]
     Dosage: 2 PUFFS EVERY 4 HOURS PRN
  3. ASPIRIN [Concomitant]
     Dosage: 81 MG, QD
     Route: 048
  4. ASTELIN [Concomitant]
     Dosage: 1 SPRAY EACH NOSTRIL, QD
  5. CALCIUM CARBONATE [Concomitant]
     Dosage: 500 MG, TID
     Route: 048
  6. VITAMIN D [Concomitant]
     Dosage: 400 IU, QD
     Route: 048
  7. QUININE SULFATE [Concomitant]
     Dosage: 260 MG, QHS, PRN
     Route: 048
  8. AMOXIL [Concomitant]
     Dosage: 250 MG, TID FOR 10 DAYS
     Route: 048
  9. AMOXIL [Concomitant]
     Dosage: 500 MG, TID FOR 10 DAYS
  10. VALIUM [Concomitant]
     Dosage: 5 MG, PRN
     Route: 048
  11. KENALOG IN ORABASE [Concomitant]
     Dosage: 1 %, BID, PRN
     Route: 048
  12. PREVACID [Concomitant]
     Dosage: 30 MG, BID
     Route: 048
  13. NASONEX [Concomitant]
     Dosage: 2 SPRAYS EACH NOSTRIL DAILY
  14. COLACE [Concomitant]
     Dosage: 100 MG, TID
     Route: 048
  15. SYNTHROID [Concomitant]
     Dosage: 500 MG, TID FOR 10 DAYS
     Route: 048
  16. ULTRAM [Concomitant]
     Dosage: 500 MG EVERY 6 HOURS, PRN
  17. FLEXERIL [Concomitant]
     Indication: BACK PAIN
     Dosage: 10 MG, TID, PRN
     Route: 048
  18. REGLAN [Concomitant]
     Indication: ABDOMINAL PAIN UPPER
     Dosage: 10 MG, TID, PRN
     Route: 048
  19. HYDROCORTISONE [Concomitant]
     Indication: PAIN
     Dosage: 20 MG, QD
     Route: 048
  20. HYDROCORTISONE [Concomitant]
     Dosage: 20 MG, TID FOR 2 DAYS
  21. HYDROCORTISONE [Concomitant]
     Dosage: 20 MG, BID FOR 2 DAYS
  22. HYDROCORTISONE [Concomitant]
     Dosage: 30 MG, BID
  23. LORAZEPAM [Concomitant]
     Indication: ANXIETY
     Dosage: 1 MG, PRN, HS
     Route: 048
  24. FOSAMAX [Concomitant]
     Dosage: 70 MG ONCE PER WEEK
  25. ALDACTONE [Concomitant]
     Dosage: 25 MG, QD
     Route: 048
  26. DEMADEX [Concomitant]
     Dosage: 20 MG, QD
     Route: 048
  27. MAXZIDE [Concomitant]
     Dosage: 25 MG, BID
     Route: 048
  28. VICODIN [Concomitant]
     Indication: PAIN
     Dosage: PRN EVERY 6 HOURS
  29. VERAPAMIL [Concomitant]
     Dosage: 120 MG, BID
     Route: 048
  30. POTASSIUM ACETATE [Concomitant]
     Dosage: 20 MEQ, BID
     Route: 048
  31. POTASSIUM ACETATE [Concomitant]
     Dosage: 20 MEQ, TID
  32. LEXAPRO [Concomitant]
     Dosage: 10 MG, QD
     Route: 048
  33. NEURONTIN [Concomitant]
     Dosage: 100 MG, 1IN THE AM AND 2 IN THE PM
     Route: 048
  34. CRESTOR [Concomitant]
     Dosage: 5 MG, QD
  35. LANTUS [Concomitant]
     Dosage: 40 U, QD IN THE MORNING
     Route: 058
  36. NOVOLOG [Concomitant]
     Dosage: QD, 10 UNITS AM, 12 AT NOON, 12 AT DINNER
  37. OXYCONTIN [Concomitant]
     Dosage: 10 MG, QD
     Route: 048
  38. CITRACAL [Concomitant]
     Dosage: 630 MG, TID
  39. ONE A DAY ADVANCE ADULTS [Concomitant]
     Dosage: 2 DAILY
  40. ASCORBIC ACID [Concomitant]
     Dosage: 500 MG, QD
  41. VITAMIN A [Concomitant]
     Dosage: 8000 IU
  42. ALDACTONE [Concomitant]
     Dosage: 25 MG, QD

REACTIONS (39)
  - ABDOMINAL PAIN LOWER [None]
  - ACUTE SINUSITIS [None]
  - ARRHYTHMIA [None]
  - ATRIAL FLUTTER [None]
  - BACK PAIN [None]
  - BLOOD ALKALINE PHOSPHATASE INCREASED [None]
  - BLOOD CHLORIDE DECREASED [None]
  - BLOOD GLUCOSE INCREASED [None]
  - BLOOD SODIUM DECREASED [None]
  - BLOOD UREA INCREASED [None]
  - BURSITIS [None]
  - CHEST PAIN [None]
  - COSTOCHONDRITIS [None]
  - DIZZINESS [None]
  - DRY THROAT [None]
  - DYSPNOEA [None]
  - DYSURIA [None]
  - ELECTROCARDIOGRAM ABNORMAL [None]
  - FATIGUE [None]
  - FOOT OPERATION [None]
  - GLYCOSYLATED HAEMOGLOBIN INCREASED [None]
  - HAEMOGLOBIN INCREASED [None]
  - HEART RATE INCREASED [None]
  - HYPERHIDROSIS [None]
  - IMPAIRED GASTRIC EMPTYING [None]
  - INFARCTION [None]
  - LYMPHOCYTE COUNT INCREASED [None]
  - MUSCLE SPASMS [None]
  - MYOCARDIAL ISCHAEMIA [None]
  - NAUSEA [None]
  - NECK PAIN [None]
  - NEUTROPHIL PERCENTAGE INCREASED [None]
  - POLLAKIURIA [None]
  - PRESYNCOPE [None]
  - SOFT TISSUE DISORDER [None]
  - TACHYCARDIA [None]
  - URINARY TRACT INFECTION [None]
  - URINE ANALYSIS ABNORMAL [None]
  - WHITE BLOOD CELL COUNT INCREASED [None]
